FAERS Safety Report 9539467 (Version 1)
Quarter: 2013Q1

REPORT INFORMATION
  Report Type: Spontaneous
  Country: US (occurrence: None)
  Receive Date: 20130322
  Receipt Date: 20130322
  Transmission Date: 20140127
  Serious: Yes (Life-Threatening, Hospitalization)
  Sender: FDA-Public Use
  Company Number: 2012000120

PATIENT
  Age: 63 Year
  Sex: Female

DRUGS (2)
  1. AMOXICILLIN (AMOXICILLIN) EXTENDED RELEASE TABLET [Suspect]
     Indication: INFECTION PROPHYLAXIS
  2. AMOXICILLIN (AMOXICILLIN) EXTENDED RELEASE TABLET [Suspect]
     Indication: JOINT PROSTHESIS USER

REACTIONS (1)
  - Drug hypersensitivity [None]
